FAERS Safety Report 8295696-0 (Version None)
Quarter: 2012Q2

REPORT INFORMATION
  Report Type: 
  Country: None (occurrence: None)
  Receive Date: 20120416
  Receipt Date: 20120416
  Transmission Date: 20120825
  Serious: Yes (Hospitalization)
  Sender: FDA-Public Use
  Company Number: None

PATIENT
  Age: 69 Year
  Sex: Male
  Weight: 103.8737 kg

DRUGS (4)
  1. DUTASTERIDE [Suspect]
     Indication: PROSTATE CANCER
     Dosage: 0.5 MG DAILY
     Dates: start: 20110915
  2. KETOCONAZOLE [Concomitant]
  3. HYDROCORTISONE [Concomitant]
  4. LAPATINIB: GLAXO SMITH KLINE [Suspect]
     Indication: PROSTATE CANCER
     Dosage: 500 MG DAILY
     Dates: start: 20111013

REACTIONS (2)
  - HAEMATURIA [None]
  - URINARY TRACT INFECTION [None]
